FAERS Safety Report 6876291-4 (Version None)
Quarter: 2010Q3

REPORT INFORMATION
  Report Type: 
  Country: None (occurrence: None)
  Receive Date: 20100727
  Receipt Date: 20100722
  Transmission Date: 20110219
  Serious: Yes (Other)
  Sender: FDA-Public Use
  Company Number: B0666634A

PATIENT
  Sex: Male

DRUGS (3)
  1. AMOXICILLIN [Suspect]
     Indication: ABSCESS
     Route: 048
     Dates: start: 20100622, end: 20100628
  2. AMOXICILLIN [Suspect]
     Indication: ABSCESS
     Route: 048
     Dates: start: 20100629, end: 20100630
  3. SUBUTEX [Concomitant]
     Route: 065

REACTIONS (4)
  - PURPURA [None]
  - PYREXIA [None]
  - RASH PUSTULAR [None]
  - VASCULITIS [None]
